FAERS Safety Report 7970226-9 (Version None)
Quarter: 2011Q4

REPORT INFORMATION
  Report Type: 
  Country: None (occurrence: None)
  Receive Date: 20111122
  Receipt Date: 20110725
  Transmission Date: 20120403
  Serious: No
  Sender: FDA-Public Use
  Company Number: PHHY2011US57075

PATIENT
  Age: 56 Year
  Sex: Female
  Weight: 90 kg

DRUGS (7)
  1. FIORICET [Concomitant]
  2. BENICAR [Concomitant]
  3. KLONOPIN [Concomitant]
  4. GILENYA [Suspect]
     Indication: MULTIPLE SCLEROSIS
     Dosage: 0.5MG, QD, ORAL
     Route: 048
     Dates: start: 20110315
  5. ATACIDS ( NO INGREDIENTS/SUBCUTANCES) [Concomitant]
  6. CYMBALTA [Concomitant]
  7. COREG [Concomitant]

REACTIONS (4)
  - MIGRAINE [None]
  - HYPERTENSION [None]
  - HEADACHE [None]
  - AXILLARY PAIN [None]
